FAERS Safety Report 23891179 (Version 1)
Quarter: 2024Q2

REPORT INFORMATION
  Report Type: Spontaneous
  Country: TR (occurrence: TR)
  Receive Date: 20240523
  Receipt Date: 20240523
  Transmission Date: 20240716
  Serious: Yes (Life-Threatening)
  Sender: FDA-Public Use
  Company Number: TR-ELI_LILLY_AND_COMPANY-TR202405013246

PATIENT
  Age: 40 Year
  Sex: Female
  Weight: 95 kg

DRUGS (4)
  1. PROZAC [Suspect]
     Active Substance: FLUOXETINE HYDROCHLORIDE
     Indication: Anxiety disorder
     Dosage: 1 CAPSULE DAILY
     Route: 048
     Dates: start: 2014, end: 201408
  2. PROZAC [Suspect]
     Active Substance: FLUOXETINE HYDROCHLORIDE
     Indication: Weight decreased
     Dosage: 1 CAPSULE DAILY
     Route: 048
     Dates: start: 201708, end: 201802
  3. PROZAC [Suspect]
     Active Substance: FLUOXETINE HYDROCHLORIDE
     Dosage: 1 CAPSULE DAILY 2021 SUMMER
     Route: 048
     Dates: start: 2021
  4. PROZAC [Suspect]
     Active Substance: FLUOXETINE HYDROCHLORIDE
     Dosage: 2 CAPSULES DAILY
     Route: 048
     Dates: start: 2020, end: 20221201

REACTIONS (7)
  - Behaviour disorder [Recovered/Resolved with Sequelae]
  - Hypomania [Recovered/Resolved with Sequelae]
  - Anger [Unknown]
  - Exposure during pregnancy [Unknown]
  - Off label use [Recovered/Resolved]
  - Insomnia [Unknown]
  - Decreased appetite [Unknown]

NARRATIVE: CASE EVENT DATE: 20140101
